FAERS Safety Report 19310191 (Version 15)
Quarter: 2025Q4

REPORT INFORMATION
  Report Type: Spontaneous
  Country: US (occurrence: US)
  Receive Date: 20210526
  Receipt Date: 20251210
  Transmission Date: 20260117
  Serious: Yes (Hospitalization, Other)
  Sender: PFIZER
  Company Number: US-PFIZER INC-2021250609

PATIENT
  Age: 69 Year
  Sex: Female

DRUGS (3)
  1. XELJANZ [Suspect]
     Active Substance: TOFACITINIB CITRATE
     Dosage: 10 MG
     Dates: start: 2019
  2. XELJANZ [Suspect]
     Active Substance: TOFACITINIB CITRATE
     Dosage: 5 MG
  3. XELJANZ [Suspect]
     Active Substance: TOFACITINIB CITRATE
     Dosage: 5 MG, 2X/DAY

REACTIONS (10)
  - Nephrolithiasis [Unknown]
  - Arterial injury [Unknown]
  - Rotator cuff repair [Unknown]
  - Knee arthroplasty [Unknown]
  - Parathyroidectomy [Unknown]
  - Thrombosis [Unknown]
  - Weight decreased [Unknown]
  - COVID-19 [Unknown]
  - Muscle strain [Unknown]
  - Diarrhoea [Unknown]

NARRATIVE: CASE EVENT DATE: 20240801
